FAERS Safety Report 11038588 (Version 1)
Quarter: 2015Q2

REPORT INFORMATION
  Report Type: Spontaneous
  Country: US (occurrence: None)
  Receive Date: 20150415
  Receipt Date: 20150415
  Transmission Date: 20150821
  Serious: Yes (Hospitalization)
  Sender: FDA-Public Use
  Company Number: None

PATIENT
  Age: 72 Year
  Sex: Female
  Weight: 56.9 kg

DRUGS (13)
  1. VITAMIN D [Concomitant]
     Active Substance: CHOLECALCIFEROL
  2. METHADONE (DOLOPHINE) [Concomitant]
  3. ONDANSETRON (ZOFRAN) [Concomitant]
  4. SYNTHROID [Concomitant]
     Active Substance: LEVOTHYROXINE SODIUM
  5. LUTEIN [Concomitant]
     Active Substance: LUTEIN
  6. POMALIDOMIDE (POMALYST) [Concomitant]
  7. RANITIDINE (ZANTAC) [Concomitant]
  8. POMALIDOMIDE [Suspect]
     Active Substance: POMALIDOMIDE
     Indication: PLASMA CELL MYELOMA
     Dosage: 1 CAPSULE
     Route: 048
     Dates: start: 20140923, end: 20150220
  9. ACYCLOVIR (ZOVIRAX) [Concomitant]
  10. ASPIRIN. [Concomitant]
     Active Substance: ASPIRIN
  11. DECADRON [Concomitant]
     Active Substance: DEXAMETHASONE
  12. FLUTICASONE - SALMETEROL (ADVAIR DISKUS) [Concomitant]
  13. PROCHLORPERAZINE (COMPAZINE) [Concomitant]

REACTIONS (2)
  - Mental status changes [None]
  - Personality change [None]

NARRATIVE: CASE EVENT DATE: 20150227
